FAERS Safety Report 4766531-X (Version None)
Quarter: 2005Q3

REPORT INFORMATION
  Report Type: 
  Country: None (occurrence: None)
  Receive Date: 20050912
  Receipt Date: 20050905
  Transmission Date: 20060218
  Serious: Yes (Disabling)
  Sender: FDA-Public Use
  Company Number: GB-ABBOTT-05P-167-0310326-00

PATIENT
  Age: 72 Year
  Sex: Female
  Weight: 56 kg

DRUGS (3)
  1. HUMIRA [Suspect]
     Indication: RHEUMATOID ARTHRITIS
     Route: 058
     Dates: start: 20050606, end: 20050728
  2. PARACETAMOL [Concomitant]
     Indication: PAIN
     Route: 048
  3. IBUPROFEN [Concomitant]
     Indication: DRUG USE FOR UNKNOWN INDICATION
     Route: 048

REACTIONS (1)
  - PULMONARY HYPERTENSION [None]
